FAERS Safety Report 10739519 (Version 1)
Quarter: 2015Q1

REPORT INFORMATION
  Report Type: Spontaneous
  Country: FI (occurrence: FI)
  Receive Date: 20150126
  Receipt Date: 20150126
  Transmission Date: 20150721
  Serious: Yes (Hospitalization)
  Sender: FDA-Public Use
  Company Number: FI-AMGEN-FINSP2015006546

PATIENT
  Age: 5 Year

DRUGS (1)
  1. ENBREL [Suspect]
     Active Substance: ETANERCEPT
     Indication: PRODUCT USED FOR UNKNOWN INDICATION
     Dosage: 14 MG, WEEKLY
     Route: 065
     Dates: end: 201409

REACTIONS (3)
  - Fatigue [Not Recovered/Not Resolved]
  - Hand-foot-and-mouth disease [Unknown]
  - Chills [Not Recovered/Not Resolved]

NARRATIVE: CASE EVENT DATE: 2014
